FAERS Safety Report 10159799 (Version 1)
Quarter: 2014Q2

REPORT INFORMATION
  Report Type: Spontaneous
  Country: US (occurrence: US)
  Receive Date: 20140508
  Receipt Date: 20140508
  Transmission Date: 20141212
  Serious: No
  Sender: FDA-Public Use
  Company Number: US-TEVA-478859USA

PATIENT
  Age: 35 Year
  Sex: Female

DRUGS (4)
  1. QVAR [Suspect]
     Indication: ASTHMA
     Dates: start: 20140419, end: 20140425
  2. AMOXICILLIN [Concomitant]
  3. BIRTH CONTROL PILL [Concomitant]
  4. PROBIOTICA [Concomitant]

REACTIONS (2)
  - Palpitations [Not Recovered/Not Resolved]
  - Dyspnoea [Not Recovered/Not Resolved]
